FAERS Safety Report 17278837 (Version 2)
Quarter: 2020Q1

REPORT INFORMATION
  Report Type: Spontaneous
  Country: FR (occurrence: FR)
  Receive Date: 20200116
  Receipt Date: 20200323
  Transmission Date: 20200409
  Serious: Yes (Death)
  Sender: FDA-Public Use
  Company Number: FR-TEVA-2020-FR-1166785

PATIENT
  Age: 41 Year
  Sex: Male

DRUGS (9)
  1. METHAMPHETAMINE [Suspect]
     Active Substance: METHAMPHETAMINE
     Indication: DRUG ABUSE
     Dosage: 2.5ML SYRINGE INJECTED UNDER HIS TONGUE
     Route: 060
  2. CARFENTANIL [Suspect]
     Active Substance: CARFENTANIL
     Indication: DRUG ABUSE
     Dosage: 2.5ML SYRINGE INJECTED UNDER HIS TONGUE
     Route: 060
  3. ALPRAZOLAM. [Suspect]
     Active Substance: ALPRAZOLAM
     Route: 065
  4. DEXTROMETHORPHAN [Suspect]
     Active Substance: DEXTROMETHORPHAN
     Indication: DRUG ABUSE
     Dosage: 2.5ML SYRINGE INJECTED UNDER HIS TONGUE
     Route: 060
  5. METHADONE [Suspect]
     Active Substance: METHADONE HYDROCHLORIDE
     Dosage: 60 MILLIGRAM DAILY;
     Route: 065
  6. KETAMINE [Suspect]
     Active Substance: KETAMINE
     Indication: DRUG ABUSE
     Dosage: 2.5ML SYRINGE INJECTED UNDER HIS TONGUE
     Route: 060
  7. ZOLPIDEM [Suspect]
     Active Substance: ZOLPIDEM TARTRATE
     Indication: DRUG ABUSE
     Dosage: 2.5ML SYRINGE INJECTED UNDER HIS TONGUE
     Route: 060
  8. AMPHETAMINE [Suspect]
     Active Substance: AMPHETAMINE
     Route: 065
  9. SKENAN [Suspect]
     Active Substance: MORPHINE SULFATE
     Indication: DRUG ABUSE
     Route: 065

REACTIONS (2)
  - Sudden death [Fatal]
  - Drug abuse [Fatal]
